FAERS Safety Report 4425308-5 (Version None)
Quarter: 2004Q3

REPORT INFORMATION
  Report Type: 
  Country: None (occurrence: None)
  Receive Date: 20040812
  Receipt Date: 20040812
  Transmission Date: 20050211
  Serious: Yes (Life-Threatening, Hospitalization)
  Sender: FDA-Public Use
  Company Number: None

PATIENT
  Age: 66 Year
  Sex: Female
  Weight: 90.7194 kg

DRUGS (2)
  1. ADENOSINE [Suspect]
     Indication: BLOOD CHOLESTEROL
  2. ADENOSINE [Suspect]
     Indication: HYPERTENSION

REACTIONS (6)
  - ALOPECIA [None]
  - DRUG HYPERSENSITIVITY [None]
  - FEELING HOT [None]
  - LABORATORY TEST ABNORMAL [None]
  - OEDEMA PERIPHERAL [None]
  - RENAL FAILURE [None]
